FAERS Safety Report 25519169 (Version 2)
Quarter: 2025Q3

REPORT INFORMATION
  Report Type: Spontaneous
  Country: JP (occurrence: JP)
  Receive Date: 20250704
  Receipt Date: 20250711
  Transmission Date: 20251021
  Serious: Yes (Other)
  Sender: TAKEDA
  Company Number: JP-TAKEDA-2025TUS060872

PATIENT
  Age: 79 Year
  Sex: Male

DRUGS (1)
  1. RAMELTEON [Suspect]
     Active Substance: RAMELTEON
     Indication: Product used for unknown indication

REACTIONS (2)
  - Depressed level of consciousness [Unknown]
  - Nocturia [Unknown]

NARRATIVE: CASE EVENT DATE: 20250601
